FAERS Safety Report 11923485 (Version 1)
Quarter: 2016Q1

REPORT INFORMATION
  Report Type: Spontaneous
  Country: US (occurrence: US)
  Receive Date: 20160118
  Receipt Date: 20160118
  Transmission Date: 20160526
  Serious: Yes (Hospitalization)
  Sender: FDA-Public Use
  Company Number: US-ROCHE-1695844

PATIENT
  Age: 77 Year
  Sex: Male
  Weight: 118.04 kg

DRUGS (1)
  1. ESBRIET [Suspect]
     Active Substance: PIRFENIDONE
     Indication: IDIOPATHIC PULMONARY FIBROSIS
     Route: 048
     Dates: start: 20150223

REACTIONS (2)
  - Lung infection [Unknown]
  - Cystitis [Unknown]

NARRATIVE: CASE EVENT DATE: 20151227
